FAERS Safety Report 5739031-8 (Version None)
Quarter: 2008Q2

REPORT INFORMATION
  Report Type: 
  Country: None (occurrence: None)
  Receive Date: 20080515
  Receipt Date: 20080515
  Transmission Date: 20081010
  Serious: Yes (Other)
  Sender: FDA-Public Use
  Company Number: None

PATIENT
  Sex: Female
  Weight: 96.1626 kg

DRUGS (1)
  1. HEPARIN [Suspect]
     Indication: CENTRAL VENOUS CATHETERISATION
     Dosage: HEPARIN 500 ULNITS QD PER LUMEN IV
     Route: 042
     Dates: start: 20080415, end: 20080428

REACTIONS (2)
  - DYSGEUSIA [None]
  - PAROSMIA [None]
